FAERS Safety Report 22850201 (Version 3)
Quarter: 2023Q4

REPORT INFORMATION
  Report Type: Report from Study
  Country: BR (occurrence: BR)
  Receive Date: 20230822
  Receipt Date: 20231004
  Transmission Date: 20240109
  Serious: No
  Sender: FDA-Public Use
  Company Number: BR-002147023-NVSC2023BR044450

PATIENT
  Age: 61 Year
  Sex: Female

DRUGS (2)
  1. KISQALI [Suspect]
     Active Substance: RIBOCICLIB
     Indication: Hormone receptor positive HER2 negative breast cancer
     Dosage: UNK
     Route: 048
     Dates: start: 20221222, end: 20230105
  2. FEMARA [Suspect]
     Active Substance: LETROZOLE
     Indication: Hormone receptor positive HER2 negative breast cancer
     Dosage: 2.5 MG, QD (ONCE A DAY)
     Route: 048
     Dates: start: 20221222, end: 20230126

REACTIONS (1)
  - Vitiligo [Recovered/Resolved]

NARRATIVE: CASE EVENT DATE: 20221223
